FAERS Safety Report 6086194-3 (Version None)
Quarter: 2009Q1

REPORT INFORMATION
  Report Type: 
  Country: None (occurrence: None)
  Receive Date: 20090217
  Receipt Date: 20090217
  Transmission Date: 20090719
  Serious: Yes (Other)
  Sender: FDA-Public Use
  Company Number: None

PATIENT
  Age: 48 Year
  Sex: Female
  Weight: 65.7716 kg

DRUGS (2)
  1. TRICOR [Suspect]
     Indication: BLOOD TRIGLYCERIDES INCREASED
     Dosage: 1 DAILY PO
     Route: 048
     Dates: start: 20080901, end: 20081130
  2. TRICOR [Suspect]
     Indication: BLOOD TRIGLYCERIDES INCREASED
     Dosage: 1 DAILY PO
     Route: 048
     Dates: start: 20090101, end: 20090214

REACTIONS (9)
  - ABDOMINAL PAIN [None]
  - CONSTIPATION [None]
  - DEPRESSION [None]
  - FATIGUE [None]
  - FEELING ABNORMAL [None]
  - MUSCLE SPASMS [None]
  - MUSCULAR WEAKNESS [None]
  - PARAESTHESIA [None]
  - VISION BLURRED [None]
